FAERS Safety Report 5278128-6 (Version None)
Quarter: 2007Q1

REPORT INFORMATION
  Report Type: 
  Country: None (occurrence: None)
  Receive Date: 20061213
  Receipt Date: 20040910
  Transmission Date: 20070707
  Serious: Yes (Disabling)
  Sender: FDA-Public Use
  Company Number: 2004UW18989

PATIENT
  Age: 37 Year
  Sex: Male

DRUGS (4)
  1. SEROQUEL [Suspect]
     Indication: DRUG WITHDRAWAL SYNDROME
     Dosage: 300 MG HS PO
     Route: 048
     Dates: start: 20040811, end: 20040826
  2. SEROQUEL [Suspect]
     Indication: PSYCHOTIC DISORDER
     Dosage: 300 MG HS PO
     Route: 048
     Dates: start: 20040811, end: 20040826
  3. LORAZEPAM [Suspect]
     Dosage: 2 MG DAILY
     Dates: start: 20040811, end: 20040825
  4. LEXAPRO [Concomitant]

REACTIONS (1)
  - URINARY RETENTION [None]
